FAERS Safety Report 9384851 (Version 1)
Quarter: 2013Q3

REPORT INFORMATION
  Report Type: Spontaneous
  Country: US (occurrence: US)
  Receive Date: 20130705
  Receipt Date: 20130705
  Transmission Date: 20140515
  Serious: No
  Sender: FDA-Public Use
  Company Number: US-PFIZER INC-2013197265

PATIENT
  Age: 52 Year
  Sex: Male
  Weight: 113.38 kg

DRUGS (4)
  1. LYRICA [Suspect]
     Indication: PAIN
     Dosage: 300 MG, 2X/DAY
     Route: 048
     Dates: start: 2007, end: 201306
  2. LYRICA [Suspect]
     Dosage: 300 MG, 3X/DAY
     Route: 048
     Dates: start: 201306
  3. LYRICA [Suspect]
     Dosage: UNK
     Route: 048
     Dates: start: 2013
  4. LORCET [Concomitant]
     Dosage: UNK

REACTIONS (3)
  - Drug ineffective [Unknown]
  - Overdose [Unknown]
  - Activities of daily living impaired [Unknown]
